FAERS Safety Report 14479542 (Version 3)
Quarter: 2018Q1

REPORT INFORMATION
  Report Type: Spontaneous
  Country: IT (occurrence: IT)
  Receive Date: 20180202
  Receipt Date: 20180222
  Transmission Date: 20180509
  Serious: Yes (Life-Threatening, Hospitalization, Congenital Anomaly, Other)
  Sender: FDA-Public Use
  Company Number: IT-MYLANLABS-2017M1070925

PATIENT
  Age: 33 Week
  Sex: Female
  Weight: 1.97 kg

DRUGS (9)
  1. DICLOFENAC [Suspect]
     Active Substance: DICLOFENAC
     Indication: SCIATICA
  2. NIMESULIDE [Suspect]
     Active Substance: NIMESULIDE
     Indication: SCIATICA
     Dosage: 1 DF, QD, MATERNAL DOSE: 1 DF, QD (1UG/LITRE)
     Route: 064
  3. PARACETAMOL [Suspect]
     Active Substance: ACETAMINOPHEN
     Indication: SCIATICA
     Dosage: UNK
     Route: 064
  4. DICLOFENAC [Suspect]
     Active Substance: DICLOFENAC
     Indication: PRODUCT USED FOR UNKNOWN INDICATION
  5. NIMESULIDE [Suspect]
     Active Substance: NIMESULIDE
     Indication: PRODUCT USED FOR UNKNOWN INDICATION
  6. DICLOFENAC [Suspect]
     Active Substance: DICLOFENAC
     Indication: SCIATICA
     Dosage: MATERNAL DOSE: 75 MG, QD
     Route: 064
  7. PARACETAMOL [Suspect]
     Active Substance: ACETAMINOPHEN
     Indication: PRODUCT USED FOR UNKNOWN INDICATION
  8. PARACETAMOL [Suspect]
     Active Substance: ACETAMINOPHEN
     Indication: SCIATICA
     Dosage: 1 DF, QD, MATERNAL DOSE: 1 DF, QD (1 UG/LITRE)
     Route: 064
  9. NIMESULIDE [Suspect]
     Active Substance: NIMESULIDE
     Indication: SCIATICA
     Dosage: 100 MG, QD
     Route: 064

REACTIONS (12)
  - Neonatal respiratory acidosis [Recovered/Resolved]
  - Contraindication to medical treatment [Unknown]
  - Foetal exposure during pregnancy [Unknown]
  - Premature baby [Unknown]
  - Bradycardia neonatal [Recovered/Resolved]
  - Neonatal respiratory distress [Unknown]
  - Ductus arteriosus premature closure [Unknown]
  - Ductus arteriosus stenosis foetal [Recovered/Resolved]
  - Cyanosis neonatal [Recovered/Resolved]
  - Overdose [Unknown]
  - Renal failure neonatal [Unknown]
  - Renal failure [Recovered/Resolved]
